FAERS Safety Report 21982587 (Version 1)
Quarter: 2023Q1

REPORT INFORMATION
  Report Type: Spontaneous
  Country: US (occurrence: US)
  Receive Date: 20230213
  Receipt Date: 20230213
  Transmission Date: 20230417
  Serious: No
  Sender: FDA-Public Use
  Company Number: US-PADAGIS-2023PAD00077

PATIENT

DRUGS (3)
  1. TRIAMCINOLONE ACETONIDE [Suspect]
     Active Substance: TRIAMCINOLONE ACETONIDE
     Indication: Paronychia
     Dosage: UNK, QD (BELOW CUTICLE)
     Route: 065
     Dates: start: 20230111
  2. KEFLEX [Concomitant]
     Active Substance: CEPHALEXIN
     Indication: Paronychia
     Dosage: UNK, QD
     Route: 065
     Dates: start: 20221231, end: 20230110
  3. FLOMAX [Concomitant]
     Active Substance: TAMSULOSIN HYDROCHLORIDE
     Indication: Urinary retention
     Dosage: UNK
     Route: 065

REACTIONS (5)
  - Application site erythema [Not Recovered/Not Resolved]
  - Skin fissures [Not Recovered/Not Resolved]
  - Application site dryness [Not Recovered/Not Resolved]
  - Product prescribing error [Unknown]
  - Product use in unapproved indication [Unknown]

NARRATIVE: CASE EVENT DATE: 20230101
